FAERS Safety Report 4944495-3 (Version None)
Quarter: 2006Q1

REPORT INFORMATION
  Report Type: 
  Country: None (occurrence: None)
  Receive Date: 20060315
  Receipt Date: 20060313
  Transmission Date: 20060701
  Serious: Yes (Hospitalization)
  Sender: FDA-Public Use
  Company Number: CA-SANOFI-SYNTHELABO-F01200600740

PATIENT
  Sex: Male

DRUGS (4)
  1. OXALIPLATIN [Suspect]
     Indication: COLORECTAL CANCER METASTATIC
     Route: 065
  2. FLUOROURACIL [Suspect]
     Route: 065
  3. LEUCOVORIN CALCIUM [Suspect]
     Dosage: UNK
     Route: 065
  4. BEVACIZUMAB [Suspect]
     Route: 042
     Dates: start: 20060228, end: 20060228

REACTIONS (1)
  - ARRHYTHMIA [None]
